FAERS Safety Report 18413600 (Version 3)
Quarter: 2020Q4

REPORT INFORMATION
  Report Type: Report from Study
  Country: None (occurrence: BE)
  Receive Date: 20201021
  Receipt Date: 20201119
  Transmission Date: 20210114
  Serious: Yes (Hospitalization)
  Sender: FDA-Public Use
  Company Number: BE-ABBVIE-20K-013-3617702-00

PATIENT
  Age: 85 Year
  Sex: Female

DRUGS (3)
  1. PROLOPA HBS [Concomitant]
     Active Substance: BENSERAZIDE\LEVODOPA
     Indication: PRODUCT USED FOR UNKNOWN INDICATION
  2. DUODOPA [Suspect]
     Active Substance: CARBIDOPA\LEVODOPA
     Indication: PARKINSON^S DISEASE
     Dosage: UNKNOWN DOSAGES
     Route: 050
     Dates: start: 20161212, end: 20200507
  3. DUODOPA [Suspect]
     Active Substance: CARBIDOPA\LEVODOPA
     Dosage: MD= 9.0 ML, CD= 2.9 ML/HR DURING 16HRS, ED= 2.0 ML
     Route: 050
     Dates: start: 20200507

REACTIONS (4)
  - Confusional state [Unknown]
  - COVID-19 [Recovered/Resolved]
  - Respiratory disorder [Unknown]
  - Gastrointestinal disorder [Unknown]
